FAERS Safety Report 10994084 (Version 3)
Quarter: 2015Q4

REPORT INFORMATION
  Report Type: Spontaneous
  Country: US (occurrence: US)
  Receive Date: 20150407
  Receipt Date: 20151103
  Transmission Date: 20160304
  Serious: Yes (Hospitalization)
  Sender: FDA-Public Use
  Company Number: US-PFIZER INC-2015115165

PATIENT
  Age: 74 Year
  Sex: Male
  Weight: 80 kg

DRUGS (13)
  1. SUTENT [Suspect]
     Active Substance: SUNITINIB MALATE
     Dosage: 37.5 MG (12.5 1 CAPSULE DAILY WITH 25 MG TO EQUAL 37.5 MG 25 MG 1 CAP DAILY), DAILY
     Route: 048
     Dates: start: 20130813
  2. FINASTERIDE. [Concomitant]
     Active Substance: FINASTERIDE
     Indication: BLOOD CHOLESTEROL ABNORMAL
     Dosage: 5 MG, DAILY
     Dates: start: 2010
  3. ROPINIROLE. [Concomitant]
     Active Substance: ROPINIROLE
     Indication: RESTLESS LEGS SYNDROME
     Dosage: 0.5 MG, AS NEEDED
     Dates: start: 2013
  4. CALCITRIOL. [Concomitant]
     Active Substance: CALCITRIOL
     Indication: BLOOD CHOLESTEROL ABNORMAL
     Dosage: 0.25 ?G, DAILY
     Dates: start: 2015
  5. SUTENT [Suspect]
     Active Substance: SUNITINIB MALATE
     Indication: RENAL CANCER
     Dosage: 37.5 MG (12.5 1 CAPSULE DAILY WITH 25 MG TO EQUAL 37.5 MG 25 MG 1 CAP DAILY), DAILY
     Route: 048
     Dates: start: 20130813
  6. IMODIUM [Concomitant]
     Active Substance: LOPERAMIDE HYDROCHLORIDE
     Dosage: UNK
  7. SUTENT [Suspect]
     Active Substance: SUNITINIB MALATE
     Dosage: UNK, ALTERNATE DAY
     Dates: start: 20130815
  8. TRAMADOL. [Concomitant]
     Active Substance: TRAMADOL
     Indication: PAIN
     Dosage: 50 MG, AS NEEDED
     Dates: start: 2013
  9. TAMSULOSIN [Concomitant]
     Active Substance: TAMSULOSIN
     Indication: BLOOD PRESSURE ABNORMAL
     Dosage: 4 MG, DAILY
     Dates: start: 2010
  10. LISINOPRIL. [Concomitant]
     Active Substance: LISINOPRIL
     Indication: BLOOD PRESSURE ABNORMAL
     Dosage: 2.5 MG, DAILY
     Dates: start: 2010
  11. HYDROCHLOROTHIAZIDE. [Concomitant]
     Active Substance: HYDROCHLOROTHIAZIDE
     Indication: FLUID RETENTION
     Dosage: 25 MG, DAILY
     Dates: start: 2010
  12. ASPIRIN. [Concomitant]
     Active Substance: ASPIRIN
     Dosage: 81 MG, DAILY
     Route: 048
  13. VITAMIN B [Concomitant]
     Active Substance: VITAMIN B
     Dosage: UNK

REACTIONS (6)
  - Haemorrhagic stroke [Recovered/Resolved]
  - Anaemia [Unknown]
  - Restless legs syndrome [Unknown]
  - Head injury [Unknown]
  - Muscular weakness [Unknown]
  - Oral discomfort [Unknown]

NARRATIVE: CASE EVENT DATE: 20150327
